FAERS Safety Report 5935046-5 (Version None)
Quarter: 2008Q4

REPORT INFORMATION
  Report Type: 
  Country: None (occurrence: None)
  Receive Date: 20081030
  Receipt Date: 20081021
  Transmission Date: 20090506
  Serious: Yes (Other)
  Sender: FDA-Public Use
  Company Number: US-BAYER-200836590NA

PATIENT
  Age: 31 Year
  Sex: Female

DRUGS (1)
  1. YASMIN [Suspect]
     Indication: ALOPECIA
     Route: 048
     Dates: start: 20080401

REACTIONS (3)
  - ALOPECIA [None]
  - PAIN OF SKIN [None]
  - PARAESTHESIA [None]
